FAERS Safety Report 14565921 (Version 1)
Quarter: 2018Q1

REPORT INFORMATION
  Report Type: Report from Study
  Country: CA (occurrence: CA)
  Receive Date: 20180223
  Receipt Date: 20180223
  Transmission Date: 20180509
  Serious: Yes (Other)
  Sender: FDA-Public Use
  Company Number: CA-ROCHE-2075024

PATIENT
  Sex: Male

DRUGS (9)
  1. METFORMIN [Concomitant]
     Active Substance: METFORMIN HYDROCHLORIDE
     Route: 065
  2. BISOPROLOL [Concomitant]
     Active Substance: BISOPROLOL
  3. SULFASALAZINE. [Concomitant]
     Active Substance: SULFASALAZINE
  4. ATORVASTATIN [Concomitant]
     Active Substance: ATORVASTATIN
  5. PREDNISONE. [Concomitant]
     Active Substance: PREDNISONE
  6. ACTEMRA [Suspect]
     Active Substance: TOCILIZUMAB
     Indication: RHEUMATOID ARTHRITIS
     Route: 058
     Dates: start: 20170704, end: 201712
  7. VENLAFAXINE [Concomitant]
     Active Substance: VENLAFAXINE HYDROCHLORIDE
  8. ACETYLSALICYLIC ACID [Concomitant]
     Active Substance: ASPIRIN
  9. HYDROXYCHLOROQUINE [Concomitant]
     Active Substance: HYDROXYCHLOROQUINE

REACTIONS (1)
  - Neoplasm malignant [Unknown]
